FAERS Safety Report 14321060 (Version 3)
Quarter: 2018Q3

REPORT INFORMATION
  Report Type: Spontaneous
  Country: GB (occurrence: GB)
  Receive Date: 20171223
  Receipt Date: 20180904
  Transmission Date: 20181010
  Serious: Yes (Hospitalization)
  Sender: FDA-Public Use
  Company Number: GB-MYLANLABS-2017M1079893

PATIENT
  Age: 52 Year
  Sex: Female

DRUGS (1)
  1. CLOZARIL [Suspect]
     Active Substance: CLOZAPINE
     Indication: SCHIZOPHRENIA
     Dosage: UNK
     Route: 048
     Dates: start: 20161122, end: 201712

REACTIONS (6)
  - Pneumonia [Recovered/Resolved]
  - Agitation [Unknown]
  - Respiratory arrest [Recovered/Resolved]
  - Chronic obstructive pulmonary disease [Unknown]
  - Mental disorder [Unknown]
  - Respiratory failure [Unknown]

NARRATIVE: CASE EVENT DATE: 201712
